FAERS Safety Report 19196945 (Version 1)
Quarter: 2021Q2

REPORT INFORMATION
  Report Type: Spontaneous
  Country: CA (occurrence: CA)
  Receive Date: 20210430
  Receipt Date: 20210430
  Transmission Date: 20210717
  Serious: Yes (Hospitalization, Other)
  Sender: FDA-Public Use
  Company Number: CA-AUROBINDO-AUR-APL-2021-016650

PATIENT
  Age: 62 Year
  Sex: Female

DRUGS (7)
  1. PANTOPRAZOLE [Suspect]
     Active Substance: PANTOPRAZOLE
     Indication: PRODUCT USED FOR UNKNOWN INDICATION
     Dosage: UNK
     Route: 065
  2. MEKINIST [Suspect]
     Active Substance: TRAMETINIB DIMETHYL SULFOXIDE
     Indication: METASTATIC MALIGNANT MELANOMA
     Dosage: 2 MILLIGRAM
     Route: 065
  3. TAFINLAR [Suspect]
     Active Substance: DABRAFENIB MESYLATE
     Dosage: 150 MILLIGRAM
     Route: 048
  4. MEKINIST [Suspect]
     Active Substance: TRAMETINIB DIMETHYL SULFOXIDE
     Dosage: 2 MILLIGRAM
     Route: 048
  5. ZANTAC [Suspect]
     Active Substance: RANITIDINE HYDROCHLORIDE
     Indication: PRODUCT USED FOR UNKNOWN INDICATION
     Dosage: UNK
     Route: 065
  6. TAFINLAR [Suspect]
     Active Substance: DABRAFENIB MESYLATE
     Indication: METASTATIC MALIGNANT MELANOMA
     Dosage: 300 MILLIGRAM
     Route: 048
  7. TAFINLAR [Suspect]
     Active Substance: DABRAFENIB MESYLATE
     Dosage: 75 MILLIGRAM
     Route: 048

REACTIONS (21)
  - Taste disorder [Unknown]
  - Drug interaction [Unknown]
  - Nausea [Unknown]
  - Neck pain [Unknown]
  - Vomiting [Unknown]
  - Dyspepsia [Unknown]
  - Arthralgia [Unknown]
  - Chills [Unknown]
  - Dizziness [Unknown]
  - Headache [Unknown]
  - Constipation [Unknown]
  - Dysgeusia [Unknown]
  - Pain [Unknown]
  - Asthenia [Unknown]
  - Diarrhoea [Unknown]
  - Pyrexia [Unknown]
  - Bone pain [Unknown]
  - Feeling abnormal [Unknown]
  - Uveitis [Unknown]
  - Cellulitis [Unknown]
  - Fatigue [Unknown]
